FAERS Safety Report 11696364 (Version 2)
Quarter: 2015Q4

REPORT INFORMATION
  Report Type: Spontaneous
  Country: AR (occurrence: AR)
  Receive Date: 20151104
  Receipt Date: 20151208
  Transmission Date: 20160304
  Serious: Yes (Death, Hospitalization)
  Sender: FDA-Public Use
  Company Number: AR-PFIZER INC-2015361461

PATIENT
  Age: 65 Year
  Sex: Male

DRUGS (1)
  1. SUTENT [Suspect]
     Active Substance: SUNITINIB MALATE
     Indication: METASTATIC RENAL CELL CARCINOMA
     Dosage: 37.5 MG, CYCLIC (4/2 SCHEME)
     Dates: start: 20150802, end: 201510

REACTIONS (3)
  - Necrosis [Not Recovered/Not Resolved]
  - Metastatic renal cell carcinoma [Fatal]
  - Disease progression [Fatal]
